FAERS Safety Report 5413067-9 (Version None)
Quarter: 2007Q3

REPORT INFORMATION
  Report Type: 
  Country: None (occurrence: None)
  Receive Date: 20070813
  Receipt Date: 20070801
  Transmission Date: 20080115
  Serious: Yes (Other)
  Sender: FDA-Public Use
  Company Number: PL-PFIZER INC-2007062482

PATIENT
  Age: 58 Year
  Sex: Female

DRUGS (2)
  1. XALATAN [Suspect]
  2. TRUSOPT [Concomitant]

REACTIONS (3)
  - CATARACT OPERATION [None]
  - DYSPNOEA [None]
  - LAPAROSCOPY [None]
